FAERS Safety Report 4775670-9 (Version None)
Quarter: 2005Q3

REPORT INFORMATION
  Report Type: 
  Country: None (occurrence: None)
  Receive Date: 20050920
  Receipt Date: 20050920
  Transmission Date: 20060218
  Serious: Yes (Life-Threatening)
  Sender: FDA-Public Use
  Company Number: None

PATIENT
  Age: 66 Year
  Sex: Female
  Weight: 66.2252 kg

DRUGS (14)
  1. REMICADE [Suspect]
     Indication: RHEUMATOID ARTHRITIS
     Dosage: 3 MG/KG EVERY 8 WEEKS IV BOLUS
     Route: 040
     Dates: start: 20040406, end: 20050426
  2. WELLBUTRIN SR [Concomitant]
  3. ZOLOFT [Concomitant]
  4. MS CONTIN [Concomitant]
  5. CELEBREX [Concomitant]
  6. REMICADE [Concomitant]
  7. OS-CAL WITH VITAMIN D [Concomitant]
  8. CALCITONIN NASAL SPRAY [Concomitant]
  9. MECLIZINE [Concomitant]
  10. PREDNISONE [Concomitant]
  11. ULTRAM [Concomitant]
  12. NORTRIPTYLINE HCL [Concomitant]
  13. ESTRADERM [Concomitant]
  14. ARTIFICIAL SALIVA [Concomitant]

REACTIONS (8)
  - CARDIAC DISORDER [None]
  - CHEST PAIN [None]
  - CHILLS [None]
  - ECHOCARDIOGRAM ABNORMAL [None]
  - ELECTROCARDIOGRAM ST SEGMENT DEPRESSION [None]
  - INFUSION RELATED REACTION [None]
  - REFUSAL OF TREATMENT BY PATIENT [None]
  - TROPONIN INCREASED [None]
